FAERS Safety Report 6084385-9 (Version None)
Quarter: 2009Q1

REPORT INFORMATION
  Report Type: 
  Country: None (occurrence: None)
  Receive Date: 20090219
  Receipt Date: 20090211
  Transmission Date: 20090719
  Serious: Yes (Life-Threatening, Hospitalization, Other)
  Sender: FDA-Public Use
  Company Number: A0768978A

PATIENT
  Age: 65 Year
  Sex: Female

DRUGS (1)
  1. TYKERB [Suspect]
     Dosage: 1250MG PER DAY
     Dates: start: 20080601, end: 20090120

REACTIONS (3)
  - BREAST CANCER METASTATIC [None]
  - CARDIAC ARREST [None]
  - CHEST PAIN [None]
